FAERS Safety Report 6183772-8 (Version None)
Quarter: 2009Q2

REPORT INFORMATION
  Report Type: 
  Country: None (occurrence: None)
  Receive Date: 20090508
  Receipt Date: 20090305
  Transmission Date: 20091009
  Serious: No
  Sender: FDA-Public Use
  Company Number: A0771844A

PATIENT
  Age: 58 Year
  Sex: Female

DRUGS (7)
  1. ALTABAX [Suspect]
     Indication: SKIN LESION
     Route: 061
     Dates: start: 20090304
  2. VERAPAMIL [Concomitant]
  3. BENAZEPRIL HYDROCHLORIDE [Concomitant]
  4. ARMOUR [Concomitant]
  5. COMBIVENT [Concomitant]
  6. ATROVENT [Concomitant]
  7. NASONEX [Concomitant]

REACTIONS (3)
  - APPLICATION SITE PAIN [None]
  - BURNING SENSATION [None]
  - INSOMNIA [None]
